FAERS Safety Report 17096071 (Version 1)
Quarter: 2019Q4

REPORT INFORMATION
  Report Type: Spontaneous
  Country: SE (occurrence: SE)
  Receive Date: 20191202
  Receipt Date: 20191202
  Transmission Date: 20200122
  Serious: Yes (Hospitalization, Other)
  Sender: FDA-Public Use
  Company Number: SE-SA-2019SA327044

PATIENT
  Sex: Female

DRUGS (2)
  1. STILNOCT [Suspect]
     Active Substance: ZOLPIDEM TARTRATE
     Dosage: UNK UNK, UNK (UNCLEAR NUMBER)
     Route: 048
     Dates: start: 20180123, end: 20180123
  2. PROMETHAZINE HYDROCHLORIDE. [Suspect]
     Active Substance: PROMETHAZINE HYDROCHLORIDE
     Dosage: 750 MG, UNK
     Route: 048
     Dates: start: 20180123, end: 20180123

REACTIONS (4)
  - Mydriasis [Unknown]
  - Intentional overdose [Unknown]
  - Anxiety [Unknown]
  - Intentional self-injury [Unknown]

NARRATIVE: CASE EVENT DATE: 20180123
